FAERS Safety Report 8066898-3 (Version None)
Quarter: 2012Q1

REPORT INFORMATION
  Report Type: 
  Country: None (occurrence: None)
  Receive Date: 20120124
  Receipt Date: 20120117
  Transmission Date: 20120608
  Serious: Yes (Other)
  Sender: FDA-Public Use
  Company Number: PHHY2012JP004405

PATIENT
  Age: 25 Year
  Sex: Female

DRUGS (2)
  1. LOSARTAN POTASSIUM [Suspect]
     Dosage: 50 MG, UNK
  2. PREDNISOLONE [Concomitant]
     Dosage: 6 MG, UNK

REACTIONS (4)
  - DELIVERY [None]
  - MATERNAL EXPOSURE DURING PREGNANCY [None]
  - PREMATURE RUPTURE OF MEMBRANES [None]
  - AMNIOTIC FLUID VOLUME DECREASED [None]
